FAERS Safety Report 20810769 (Version 1)
Quarter: 2022Q2

REPORT INFORMATION
  Report Type: Spontaneous
  Country: US (occurrence: US)
  Receive Date: 20220510
  Receipt Date: 20220510
  Transmission Date: 20220721
  Serious: No
  Sender: FDA-Public Use
  Company Number: US-PFIZER INC-202200334071

PATIENT
  Age: 62 Year
  Sex: Female
  Weight: 68.934 kg

DRUGS (1)
  1. PREGABALIN [Suspect]
     Active Substance: PREGABALIN
     Indication: Fibromyalgia
     Dosage: UNK

REACTIONS (6)
  - Fear [Unknown]
  - Rash [Unknown]
  - Insomnia [Unknown]
  - Irritability [Unknown]
  - Mania [Unknown]
  - Peripheral swelling [Unknown]
